FAERS Safety Report 9872194 (Version 1)
Quarter: 2014Q1

REPORT INFORMATION
  Report Type: Spontaneous
  Country: US (occurrence: US)
  Receive Date: 20140205
  Receipt Date: 20140205
  Transmission Date: 20141002
  Serious: No
  Sender: FDA-Public Use
  Company Number: US-ALLERGAN-1306363US

PATIENT
  Age: 43 Year
  Sex: Male

DRUGS (5)
  1. BOTOX [Suspect]
     Indication: MUSCLE SPASMS
     Dosage: 100 UNITS, SINGLE
     Route: 030
     Dates: start: 201304, end: 201304
  2. DEPAKOTE [Concomitant]
     Indication: BIPOLAR DISORDER
     Dosage: 500 MG, QAM
     Route: 048
  3. DEPAKOTE [Concomitant]
     Dosage: 1000 MG, QHS
     Route: 048
  4. ENALAPRIL/WATER PILL [Concomitant]
     Indication: HYPERTENSION
  5. TRIHEXYPHENIDYL [Concomitant]
     Indication: PRODUCT USED FOR UNKNOWN INDICATION
     Dosage: 2 MG, UNK

REACTIONS (8)
  - Dyskinesia [Not Recovered/Not Resolved]
  - Tension [Not Recovered/Not Resolved]
  - Dyskinesia [Not Recovered/Not Resolved]
  - Musculoskeletal discomfort [Not Recovered/Not Resolved]
  - Musculoskeletal disorder [Not Recovered/Not Resolved]
  - Injection site discomfort [Not Recovered/Not Resolved]
  - Injection site pain [Not Recovered/Not Resolved]
  - Drug ineffective [Unknown]
